FAERS Safety Report 26196503 (Version 1)
Quarter: 2025Q4

REPORT INFORMATION
  Report Type: Spontaneous
  Country: CN (occurrence: CN)
  Receive Date: 20251224
  Receipt Date: 20251224
  Transmission Date: 20260118
  Serious: Yes (Other)
  Sender: AMGEN
  Company Number: CN-AMGEN-CHNSP2025251529

PATIENT
  Age: 65 Year
  Sex: Male
  Weight: 72 kg

DRUGS (8)
  1. KYPROLIS [Suspect]
     Active Substance: CARFILZOMIB
     Indication: Plasma cell myeloma
     Dosage: 30 MILLIGRAM
     Route: 040
     Dates: start: 20241122, end: 20241123
  2. KYPROLIS [Suspect]
     Active Substance: CARFILZOMIB
     Dosage: 49 MILLIGRAM
     Route: 040
     Dates: start: 20251130, end: 20251130
  3. KYPROLIS [Suspect]
     Active Substance: CARFILZOMIB
     Dosage: 49 MILLIGRAM
     Route: 040
     Dates: start: 20241202, end: 20241202
  4. KYPROLIS [Suspect]
     Active Substance: CARFILZOMIB
     Dosage: 30 MILLIGRAM
     Route: 040
     Dates: start: 20241208, end: 20241209
  5. DEXTROSE [Concomitant]
     Active Substance: DEXTROSE MONOHYDRATE
     Indication: Product used for unknown indication
     Dosage: 100 MILLILITER
     Route: 040
     Dates: start: 20241122, end: 20241123
  6. DEXTROSE [Concomitant]
     Active Substance: DEXTROSE MONOHYDRATE
     Dosage: 100 MILLILITER
     Route: 040
     Dates: start: 20241130, end: 20241130
  7. DEXTROSE [Concomitant]
     Active Substance: DEXTROSE MONOHYDRATE
     Dosage: 100 MILLIGRAM
     Route: 040
     Dates: start: 20241202, end: 20241202
  8. DEXTROSE [Concomitant]
     Active Substance: DEXTROSE MONOHYDRATE
     Dosage: 100 MILLIGRAM
     Route: 040
     Dates: start: 20241208, end: 20241209

REACTIONS (1)
  - Full blood count abnormal [Recovering/Resolving]

NARRATIVE: CASE EVENT DATE: 20241204
